FAERS Safety Report 11685891 (Version 2)
Quarter: 2015Q4

REPORT INFORMATION
  Report Type: Spontaneous
  Country: CH (occurrence: CH)
  Receive Date: 20151030
  Receipt Date: 20151105
  Transmission Date: 20160304
  Serious: Yes (Death)
  Sender: FDA-Public Use
  Company Number: CH-BIOGENIDEC-2015BI141526

PATIENT
  Age: 55 Year
  Sex: Male

DRUGS (5)
  1. OXYCONTIN RETARD [Concomitant]
  2. TRIATEC [Concomitant]
     Active Substance: RAMIPRIL
  3. SERESTA [Concomitant]
     Active Substance: OXAZEPAM
  4. ADALAT CC [Concomitant]
     Active Substance: NIFEDIPINE
  5. TYSABRI [Suspect]
     Active Substance: NATALIZUMAB
     Indication: RELAPSING-REMITTING MULTIPLE SCLEROSIS
     Route: 042
     Dates: start: 20141001

REACTIONS (5)
  - Feeling of despair [Unknown]
  - Dissociation [Unknown]
  - Completed suicide [Fatal]
  - Depressed mood [Unknown]
  - Mood altered [Unknown]

NARRATIVE: CASE EVENT DATE: 20150709
